FAERS Safety Report 5601930-5 (Version None)
Quarter: 2008Q1

REPORT INFORMATION
  Report Type: 
  Country: None (occurrence: None)
  Receive Date: 20080125
  Receipt Date: 20080117
  Transmission Date: 20080703
  Serious: Yes (Other)
  Sender: FDA-Public Use
  Company Number: US-BAYER-200810200NA

PATIENT
  Age: 43 Year
  Sex: Female
  Weight: 67 kg

DRUGS (3)
  1. YAZ [Suspect]
     Indication: ENDOMETRIOSIS
     Route: 015
     Dates: start: 20071223, end: 20071230
  2. WELLBUTRIN XL [Concomitant]
     Indication: DEPRESSION
     Route: 048
     Dates: start: 20050401
  3. FLONASE [Concomitant]
     Indication: MULTIPLE ALLERGIES
     Route: 045

REACTIONS (7)
  - PALPITATIONS [None]
  - PARAESTHESIA ORAL [None]
  - RASH ERYTHEMATOUS [None]
  - RASH GENERALISED [None]
  - RASH PAPULAR [None]
  - SWOLLEN TONGUE [None]
  - URTICARIA [None]
